FAERS Safety Report 4981852-3 (Version None)
Quarter: 2006Q2

REPORT INFORMATION
  Report Type: 
  Country: None (occurrence: None)
  Receive Date: 20060425
  Receipt Date: 20060420
  Transmission Date: 20061013
  Serious: Yes (Other)
  Sender: FDA-Public Use
  Company Number: US-JNJFOC-20060404806

PATIENT
  Age: 54 Year
  Sex: Female

DRUGS (1)
  1. ARESTIN [Suspect]
     Indication: PERIODONTITIS
     Route: 004

REACTIONS (3)
  - ANAESTHETIC COMPLICATION [None]
  - FACIAL PALSY [None]
  - PAIN [None]
